FAERS Safety Report 20775593 (Version 9)
Quarter: 2023Q2

REPORT INFORMATION
  Report Type: Report from Study
  Country: CA (occurrence: CA)
  Receive Date: 20220502
  Receipt Date: 20230601
  Transmission Date: 20230722
  Serious: Yes (Hospitalization, Other)
  Sender: FDA-Public Use
  Company Number: CA-AMERICAN REGENT INC-2022001178

PATIENT
  Age: 47 Year
  Sex: Female
  Weight: 95 kg

DRUGS (130)
  1. VENOFER [Suspect]
     Active Substance: IRON SUCROSE
     Indication: Product used for unknown indication
     Dosage: 20 MILLIGRAM/MILLILITER
     Route: 042
  2. HYDRALAZINE HYDROCHLORIDE [Suspect]
     Active Substance: HYDRALAZINE HYDROCHLORIDE
     Indication: Product used for unknown indication
     Dosage: UNK
     Route: 065
  3. ARAVA [Suspect]
     Active Substance: LEFLUNOMIDE
     Indication: Rheumatoid arthritis
     Dosage: UNK
     Route: 065
  4. ATENOLOL [Suspect]
     Active Substance: ATENOLOL
     Indication: Product used for unknown indication
     Dosage: UNK
     Route: 065
  5. BIAXIN [Suspect]
     Active Substance: CLARITHROMYCIN
     Indication: Product used for unknown indication
     Dosage: UNK
     Route: 042
  6. BIAXIN [Suspect]
     Active Substance: CLARITHROMYCIN
     Dosage: UNK
     Route: 065
  7. BIAXIN [Suspect]
     Active Substance: CLARITHROMYCIN
     Indication: Product used for unknown indication
     Dosage: UNK
     Route: 065
  8. BIAXIN [Suspect]
     Active Substance: CLARITHROMYCIN
     Dosage: UNK
     Route: 042
  9. CELEBREX [Suspect]
     Active Substance: CELECOXIB
     Indication: Arthritis
     Dosage: UNK; CAPSULE
     Route: 065
  10. CELEBREX [Suspect]
     Active Substance: CELECOXIB
     Indication: Product used for unknown indication
     Dosage: UNK; CAPSULE HARD
     Route: 065
  11. CEPHALEXIN [Suspect]
     Active Substance: CEPHALEXIN
     Indication: Product used for unknown indication
     Dosage: UNK
     Route: 065
  12. CEPHALEXIN MONOHYDRATE [Suspect]
     Active Substance: CEPHALEXIN MONOHYDRATE
     Indication: Product used for unknown indication
     Dosage: UNK
     Route: 065
  13. CIPROFLOXACIN [Suspect]
     Active Substance: CIPROFLOXACIN
     Indication: Product used for unknown indication
     Dosage: UNK; TABLET
     Route: 065
  14. CIPROFLOXACIN [Suspect]
     Active Substance: CIPROFLOXACIN
     Dosage: UNK
     Route: 065
  15. CIPROFLOXACIN [Suspect]
     Active Substance: CIPROFLOXACIN
     Dosage: UNK
     Route: 065
  16. CIPROFLOXACIN HYDROCHLORIDE [Suspect]
     Active Substance: CIPROFLOXACIN HYDROCHLORIDE
     Indication: Product used for unknown indication
     Dosage: UNK
     Route: 065
  17. CIPROFLOXACIN LACTATE [Suspect]
     Active Substance: CIPROFLOXACIN LACTATE
     Indication: Product used for unknown indication
     Dosage: UNK
     Route: 065
  18. CLINDAMYCIN [Suspect]
     Active Substance: CLINDAMYCIN
     Indication: Product used for unknown indication
     Dosage: UNK
     Route: 065
  19. CLINDAMYCIN [Suspect]
     Active Substance: CLINDAMYCIN
     Dosage: UNK
     Route: 065
  20. CLINDAMYCIN HYDROCHLORIDE [Suspect]
     Active Substance: CLINDAMYCIN HYDROCHLORIDE
     Indication: Product used for unknown indication
     Dosage: UNK
     Route: 065
  21. CLINDAMYCIN HYDROCHLORIDE [Suspect]
     Active Substance: CLINDAMYCIN HYDROCHLORIDE
     Dosage: UNK
     Route: 065
  22. CLINDAMYCIN HYDROCHLORIDE [Suspect]
     Active Substance: CLINDAMYCIN HYDROCHLORIDE
     Dosage: UNK
     Route: 065
  23. CODEINE [Suspect]
     Active Substance: CODEINE
     Indication: Product used for unknown indication
     Dosage: UNK
     Route: 065
  24. CODEINE SULFATE [Suspect]
     Active Substance: CODEINE SULFATE
     Indication: Product used for unknown indication
     Dosage: UNK
     Route: 065
  25. ENALAPRIL [Suspect]
     Active Substance: ENALAPRIL
     Indication: Product used for unknown indication
     Dosage: UNK; TABLET
     Route: 065
  26. ENALAPRIL [Suspect]
     Active Substance: ENALAPRIL
     Dosage: UNK
     Route: 065
  27. ENALAPRIL MALEATE [Suspect]
     Active Substance: ENALAPRIL MALEATE
     Indication: Product used for unknown indication
     Dosage: UNK
     Route: 065
  28. ENBREL [Suspect]
     Active Substance: ETANERCEPT
     Indication: Rheumatoid arthritis
     Dosage: UNK
     Route: 065
  29. ENBREL [Suspect]
     Active Substance: ETANERCEPT
     Dosage: UNK
     Route: 058
  30. ENBREL [Suspect]
     Active Substance: ETANERCEPT
     Dosage: 50 MILLIGRAM
     Route: 058
  31. ENBREL [Suspect]
     Active Substance: ETANERCEPT
     Dosage: 50 MILLIGRAM
     Route: 058
  32. ENBREL [Suspect]
     Active Substance: ETANERCEPT
     Dosage: UNK
     Route: 065
  33. ENBREL [Suspect]
     Active Substance: ETANERCEPT
     Dosage: 50 MILLIGRAM 1 EVERY 1 WEEKS
     Route: 058
  34. ENBREL [Suspect]
     Active Substance: ETANERCEPT
     Dosage: UNK
     Route: 058
  35. ENBREL [Suspect]
     Active Substance: ETANERCEPT
     Dosage: 50 MILLIGRAM 1 EVERY 1 WEEKS
     Route: 058
  36. FOSAMAX [Suspect]
     Active Substance: ALENDRONATE SODIUM
     Indication: Product used for unknown indication
     Dosage: UNK; TABLET
     Route: 065
  37. FOSAMAX [Suspect]
     Active Substance: ALENDRONATE SODIUM
     Dosage: UNK
     Route: 065
  38. GLICLAZIDE [Suspect]
     Active Substance: GLICLAZIDE
     Indication: Product used for unknown indication
     Dosage: UNK
     Route: 065
  39. HYDROCHLOROTHIAZIDE [Suspect]
     Active Substance: HYDROCHLOROTHIAZIDE
     Indication: Product used for unknown indication
     Dosage: UNK
     Route: 065
  40. HYDROCHLOROTHIAZIDE [Suspect]
     Active Substance: HYDROCHLOROTHIAZIDE
     Dosage: UNK
     Route: 065
  41. HYDRALAZINE HYDROCHLORIDE [Suspect]
     Active Substance: HYDRALAZINE HYDROCHLORIDE
     Indication: Product used for unknown indication
     Dosage: UNK
     Route: 065
  42. HYDROCHLOROTHIAZIDE [Suspect]
     Active Substance: HYDROCHLOROTHIAZIDE
     Indication: Product used for unknown indication
     Dosage: UNK
     Route: 065
  43. HYDROCHLOROTHIAZIDE [Suspect]
     Active Substance: HYDROCHLOROTHIAZIDE
     Dosage: UNK
     Route: 065
  44. HYDROXYCHLOROQUINE [Suspect]
     Active Substance: HYDROXYCHLOROQUINE
     Indication: Product used for unknown indication
     Dosage: UNK
     Route: 065
  45. HYDROXYCHLOROQUINE SULFATE [Suspect]
     Active Substance: HYDROXYCHLOROQUINE SULFATE
     Indication: Product used for unknown indication
     Dosage: UNK
     Route: 065
  46. HYDROXYCHLOROQUINE SULFATE [Suspect]
     Active Substance: HYDROXYCHLOROQUINE SULFATE
     Dosage: UNK
     Route: 065
  47. HYDROXYCHLOROQUINE SULFATE [Suspect]
     Active Substance: HYDROXYCHLOROQUINE SULFATE
     Dosage: UNK
     Route: 065
  48. HYDROXYCHLOROQUINE SULFATE [Suspect]
     Active Substance: HYDROXYCHLOROQUINE SULFATE
     Dosage: UNK
     Route: 065
  49. ISONIAZID [Suspect]
     Active Substance: ISONIAZID
     Indication: Product used for unknown indication
     Dosage: UNK
     Route: 065
  50. KEFLEX [Suspect]
     Active Substance: CEPHALEXIN
     Indication: Product used for unknown indication
     Dosage: UNK
     Route: 065
  51. LEVAQUIN [Suspect]
     Active Substance: LEVOFLOXACIN
     Indication: Product used for unknown indication
     Dosage: UNK
     Route: 065
  52. LEVOTHYROXINE SODIUM [Suspect]
     Active Substance: LEVOTHYROXINE SODIUM
     Indication: Product used for unknown indication
     Dosage: UNK
     Route: 065
  53. LEVOTHYROXINE SODIUM [Suspect]
     Active Substance: LEVOTHYROXINE SODIUM
     Dosage: UNK
     Route: 065
  54. LOSARTAN [Suspect]
     Active Substance: LOSARTAN
     Indication: Product used for unknown indication
     Dosage: UNK; TABLET
     Route: 065
  55. LOSARTAN [Suspect]
     Active Substance: LOSARTAN
     Dosage: UNK
     Route: 065
  56. LOSARTAN [Suspect]
     Active Substance: LOSARTAN
     Dosage: UNK
     Route: 065
  57. LOSARTAN POTASSIUM [Suspect]
     Active Substance: LOSARTAN POTASSIUM
     Indication: Product used for unknown indication
     Dosage: UNK
     Route: 065
  58. LOSARTAN POTASSIUM [Suspect]
     Active Substance: LOSARTAN POTASSIUM
     Dosage: UNK
     Route: 065
  59. LOSARTAN POTASSIUM [Suspect]
     Active Substance: LOSARTAN POTASSIUM
     Dosage: UNK
     Route: 065
  60. METHOTREXATE [Suspect]
     Active Substance: METHOTREXATE
     Indication: Rheumatoid arthritis
     Dosage: 10 MILLIGRAM, 1 IN 1 WK
     Route: 058
  61. METHOTREXATE [Suspect]
     Active Substance: METHOTREXATE
     Dosage: UNK
     Route: 065
  62. METHOTREXATE [Suspect]
     Active Substance: METHOTREXATE
     Dosage: 10 MILLIGRAM, 1 IN 1 WK
     Route: 065
  63. METHOTREXATE [Suspect]
     Active Substance: METHOTREXATE
     Dosage: 10 MILLIGRAM, 1 EVERY 1 WEEKS
     Route: 058
  64. METHOTREXATE [Suspect]
     Active Substance: METHOTREXATE
     Dosage: UNK
     Route: 065
  65. METHOTREXATE [Suspect]
     Active Substance: METHOTREXATE
     Dosage: 10 MILLIGRAM, 1 EVERY 1 WEEKS
     Route: 058
  66. METHOTREXATE [Suspect]
     Active Substance: METHOTREXATE
     Dosage: 10 MILLIGRAM, 1 EVERY 1 WEEKS
     Route: 065
  67. METHOTREXATE [Suspect]
     Active Substance: METHOTREXATE
     Dosage: UNK
     Route: 065
  68. METHOTREXATE [Suspect]
     Active Substance: METHOTREXATE
     Dosage: 10 MILLIGRAM, 1 EVERY 1 WEEKS
     Route: 065
  69. METHOTREXATE [Suspect]
     Active Substance: METHOTREXATE
     Dosage: 10 MILLIGRAM
     Route: 065
  70. METHOTREXATE [Suspect]
     Active Substance: METHOTREXATE
     Dosage: 10 MILLIGRAM, 1 EVERY 1 WEEKS
     Route: 037
  71. METOPROLOL [Suspect]
     Active Substance: METOPROLOL
     Indication: Product used for unknown indication
     Dosage: UNK
     Route: 065
  72. METOPROLOL TARTRATE [Suspect]
     Active Substance: METOPROLOL TARTRATE
     Indication: Product used for unknown indication
     Dosage: UNK
     Route: 065
  73. METOPROLOL TARTRATE [Suspect]
     Active Substance: METOPROLOL TARTRATE
     Dosage: UNK
     Route: 065
  74. METOPROLOL TARTRATE [Suspect]
     Active Substance: METOPROLOL TARTRATE
     Dosage: UNK
     Route: 065
  75. MOXIFLOXACIN [Suspect]
     Active Substance: MOXIFLOXACIN
     Indication: Product used for unknown indication
     Dosage: UNK
     Route: 065
  76. MOXIFLOXACIN HYDROCHLORIDE [Suspect]
     Active Substance: MOXIFLOXACIN HYDROCHLORIDE
     Indication: Product used for unknown indication
     Dosage: 400 MILLIGRAM
     Route: 065
  77. MOXIFLOXACIN HYDROCHLORIDE [Suspect]
     Active Substance: MOXIFLOXACIN HYDROCHLORIDE
     Dosage: UNK
     Route: 065
  78. ORENCIA [Suspect]
     Active Substance: ABATACEPT
     Indication: Product used for unknown indication
     Dosage: UNK
     Route: 042
  79. ORENCIA [Suspect]
     Active Substance: ABATACEPT
     Dosage: UNK
     Route: 065
  80. ORENCIA [Suspect]
     Active Substance: ABATACEPT
     Dosage: UNK
     Route: 065
  81. ORENCIA [Suspect]
     Active Substance: ABATACEPT
     Dosage: UNK
     Route: 065
  82. PANTOPRAZOLE MAGNESIUM [Suspect]
     Active Substance: PANTOPRAZOLE MAGNESIUM
     Indication: Product used for unknown indication
     Dosage: UNK
     Route: 065
  83. PANTOPRAZOLE SODIUM ANHYDROUS [Suspect]
     Active Substance: PANTOPRAZOLE SODIUM ANHYDROUS
     Indication: Product used for unknown indication
     Dosage: UNK
     Route: 065
  84. PANTOPRAZOLE SODIUM [Suspect]
     Active Substance: PANTOPRAZOLE SODIUM
     Indication: Product used for unknown indication
     Dosage: UNK
     Route: 065
  85. RABEPRAZOLE SODIUM [Suspect]
     Active Substance: RABEPRAZOLE SODIUM
     Indication: Product used for unknown indication
     Dosage: UNK
     Route: 065
  86. RABEPRAZOLE SODIUM [Suspect]
     Active Substance: RABEPRAZOLE SODIUM
     Dosage: UNK
     Route: 065
  87. PATIROMER [Suspect]
     Active Substance: PATIROMER
     Indication: Product used for unknown indication
     Dosage: UNK
     Route: 065
  88. PENICILLIN G 2-AMINO-4-METHYLPYRIMIDINE [Suspect]
     Active Substance: PENICILLIN G 2-AMINO-4-METHYLPYRIMIDINE
     Indication: Product used for unknown indication
     Dosage: UNK
     Route: 065
  89. PENICILLIN G [Suspect]
     Active Substance: PENICILLIN G
     Indication: Product used for unknown indication
     Dosage: UNK
     Route: 065
  90. PENICILLIN G POTASSIUM [Suspect]
     Active Substance: PENICILLIN G POTASSIUM
     Indication: Product used for unknown indication
     Dosage: UNK
     Route: 065
  91. PENICILLIN G SODIUM [Suspect]
     Active Substance: PENICILLIN G SODIUM
     Indication: Product used for unknown indication
     Dosage: UNK
     Route: 065
  92. PENICILLIN [Suspect]
     Active Substance: PENICILLIN
     Indication: Product used for unknown indication
     Dosage: UNK
     Route: 065
  93. HYDROXYCHLOROQUINE DIPHOSPHATE [Suspect]
     Active Substance: HYDROXYCHLOROQUINE DIPHOSPHATE
     Indication: Product used for unknown indication
     Dosage: UNK
     Route: 065
  94. HYDROXYCHLOROQUINE DIPHOSPHATE [Suspect]
     Active Substance: HYDROXYCHLOROQUINE DIPHOSPHATE
     Dosage: UNK
     Route: 065
  95. SACCHARATED IRON OXIDE [Suspect]
     Active Substance: IRON SUCROSE
     Indication: Product used for unknown indication
     Dosage: UNK
     Route: 065
  96. PANTOPRAZOLE MAGNESIUM [Suspect]
     Active Substance: PANTOPRAZOLE MAGNESIUM
     Indication: Product used for unknown indication
     Dosage: UNK
     Route: 065
  97. PANTOPRAZOLE MAGNESIUM [Suspect]
     Active Substance: PANTOPRAZOLE MAGNESIUM
     Dosage: UNK
     Route: 048
  98. PIPERACILLIN SODIUM\TAZOBACTAM SODIUM [Suspect]
     Active Substance: PIPERACILLIN SODIUM\TAZOBACTAM SODIUM
     Indication: Product used for unknown indication
     Dosage: UNK
     Route: 065
  99. PIPERACILLIN SODIUM\TAZOBACTAM SODIUM [Suspect]
     Active Substance: PIPERACILLIN SODIUM\TAZOBACTAM SODIUM
     Dosage: UNK
     Route: 048
  100. VELTASSA [Suspect]
     Active Substance: PATIROMER
     Indication: Product used for unknown indication
     Dosage: UNK
     Route: 048
  101. XELJANZ [Suspect]
     Active Substance: TOFACITINIB CITRATE
     Indication: Rheumatoid arthritis
     Dosage: UNK
     Route: 048
  102. XELJANZ [Suspect]
     Active Substance: TOFACITINIB CITRATE
     Dosage: 50 MILLIGRAM, BID
     Route: 048
  103. XELJANZ [Suspect]
     Active Substance: TOFACITINIB CITRATE
     Dosage: 50 MILLIGRAM 1 EVERY 1 DAYS
     Route: 048
  104. ATENOLOL [Concomitant]
     Active Substance: ATENOLOL
     Indication: Product used for unknown indication
     Dosage: UNK
     Route: 065
  105. ATENOLOL [Concomitant]
     Active Substance: ATENOLOL
     Dosage: UNK
     Route: 065
  106. ATENOLOL AND CHLORTHALIDONE [Concomitant]
     Active Substance: ATENOLOL\CHLORTHALIDONE
     Indication: Product used for unknown indication
     Dosage: UNK
     Route: 065
  107. LEUCOVORIN CALCIUM [Concomitant]
     Active Substance: LEUCOVORIN CALCIUM
     Indication: Product used for unknown indication
     Dosage: UNK
     Route: 065
  108. CIPRO [Concomitant]
     Active Substance: CIPROFLOXACIN HYDROCHLORIDE
     Indication: Product used for unknown indication
     Dosage: UNK
     Route: 065
  109. COLCHICINE [Concomitant]
     Active Substance: COLCHICINE
     Indication: Product used for unknown indication
     Dosage: UNK
     Route: 065
  110. PERINDOPRIL ERBUMINE [Concomitant]
     Active Substance: PERINDOPRIL ERBUMINE
     Indication: Product used for unknown indication
     Dosage: UNK
     Route: 065
  111. ESOMEPRAZOLE [Concomitant]
     Active Substance: ESOMEPRAZOLE
     Indication: Product used for unknown indication
     Dosage: UNK
     Route: 065
  112. ESOMEPRAZOLE [Concomitant]
     Active Substance: ESOMEPRAZOLE
     Dosage: UNK
     Route: 065
  113. ESOMEPRAZOLE MAGNESIUM [Concomitant]
     Active Substance: ESOMEPRAZOLE MAGNESIUM
     Indication: Abdominal discomfort
     Dosage: UNK
     Route: 065
  114. GOLD [Concomitant]
     Active Substance: GOLD
     Indication: Product used for unknown indication
     Dosage: UNK
     Route: 065
  115. GOLD [Concomitant]
     Active Substance: GOLD
     Dosage: UNK
     Route: 065
  116. HUMIRA [Concomitant]
     Active Substance: ADALIMUMAB
     Indication: Product used for unknown indication
     Dosage: UNK
     Route: 058
  117. HUMIRA [Concomitant]
     Active Substance: ADALIMUMAB
     Dosage: UNK
     Route: 065
  118. IRON SUCROSE [Concomitant]
     Active Substance: IRON SUCROSE
     Indication: Product used for unknown indication
     Dosage: UNK
     Route: 065
  119. LEUCOVORIN [Concomitant]
     Active Substance: LEUCOVORIN
     Indication: Product used for unknown indication
     Dosage: UNK; TABLET
     Route: 065
  120. LEUCOVORIN [Concomitant]
     Active Substance: LEUCOVORIN
     Dosage: UNK
     Route: 065
  121. PATIROMER [Concomitant]
     Active Substance: PATIROMER
     Indication: Product used for unknown indication
     Dosage: UNK
     Route: 065
  122. PREDNISONE [Concomitant]
     Active Substance: PREDNISONE
     Indication: Product used for unknown indication
     Dosage: UNK
     Route: 065
  123. PREDNISONE [Concomitant]
     Active Substance: PREDNISONE
     Dosage: 8.5 MILLIGRAM, 1 IN 1 D
     Route: 065
  124. PREDNISONE [Concomitant]
     Active Substance: PREDNISONE
     Dosage: 8.5 MILLIGRAM, 1 EVERY 1 DAYS
     Route: 048
  125. PREDNISONE [Concomitant]
     Active Substance: PREDNISONE
     Dosage: 8.5 MILLIGRAM, 1 EVERY 1 DAYS
     Route: 048
  126. RANITIDINE [Concomitant]
     Active Substance: RANITIDINE
     Indication: Product used for unknown indication
     Dosage: UNK
     Route: 065
  127. RANITIDINE HYDROCHLORIDE [Concomitant]
     Active Substance: RANITIDINE HYDROCHLORIDE
     Indication: Product used for unknown indication
     Dosage: UNK
     Route: 065
  128. RITUXIMAB [Concomitant]
     Active Substance: RITUXIMAB
     Indication: Product used for unknown indication
     Dosage: UNK
     Route: 042
  129. SACCHARATED IRON OXIDE [Concomitant]
     Active Substance: IRON SUCROSE
     Indication: Product used for unknown indication
     Dosage: UNK
     Route: 065
  130. SACCHARATED IRON OXIDE [Concomitant]
     Active Substance: IRON SUCROSE
     Indication: Product used for unknown indication
     Dosage: UNK
     Route: 065

REACTIONS (25)
  - Gastric disorder [Unknown]
  - Hepatic steatosis [Unknown]
  - Drug intolerance [Unknown]
  - Liver disorder [Unknown]
  - Hepatic enzyme increased [Unknown]
  - Loss of employment [Unknown]
  - Therapeutic product effect decreased [Unknown]
  - Drug ineffective [Unknown]
  - Contraindicated product administered [Unknown]
  - Off label use [Unknown]
  - Product use issue [Unknown]
  - Malaise [Unknown]
  - Rash [Unknown]
  - Abdominal discomfort [Unknown]
  - Abdominal pain upper [Unknown]
  - Diarrhoea [Unknown]
  - Nausea [Unknown]
  - Arthralgia [Unknown]
  - Cardiac failure [Unknown]
  - Cardiac failure congestive [Unknown]
  - Cough [Unknown]
  - Drug hypersensitivity [Unknown]
  - Dyspnoea [Unknown]
  - Headache [Unknown]
  - Hypertension [Unknown]
